FAERS Safety Report 21082174 (Version 2)
Quarter: 2022Q3

REPORT INFORMATION
  Report Type: Report from Study
  Country: US (occurrence: US)
  Receive Date: 20220714
  Receipt Date: 20220819
  Transmission Date: 20221026
  Serious: Yes (Hospitalization)
  Sender: FDA-Public Use
  Company Number: US-TAKEDA-2022TUS047054

PATIENT
  Age: 3 Year
  Sex: Male

DRUGS (9)
  1. TEDUGLUTIDE [Suspect]
     Active Substance: TEDUGLUTIDE
     Indication: Short-bowel syndrome
     Dosage: 0.700 MILLIGRAM, QD
     Route: 042
     Dates: start: 20210113
  2. TEDUGLUTIDE [Suspect]
     Active Substance: TEDUGLUTIDE
     Indication: Short-bowel syndrome
     Dosage: 0.700 MILLIGRAM, QD
     Route: 042
     Dates: start: 20210113
  3. TEDUGLUTIDE [Suspect]
     Active Substance: TEDUGLUTIDE
     Indication: Short-bowel syndrome
     Dosage: 0.700 MILLIGRAM, QD
     Route: 042
     Dates: start: 20210113
  4. TEDUGLUTIDE [Suspect]
     Active Substance: TEDUGLUTIDE
     Indication: Short-bowel syndrome
     Dosage: 0.700 MILLIGRAM, QD
     Route: 042
     Dates: start: 20210113
  5. DAPTOMYCIN [Concomitant]
     Active Substance: DAPTOMYCIN
     Indication: Arthritis bacterial
     Dosage: 10.00 MILLIGRAM/KILOGRAM, QD
     Route: 042
     Dates: start: 20211231, end: 20220202
  6. DAPTOMYCIN [Concomitant]
     Active Substance: DAPTOMYCIN
     Indication: Vascular device infection
  7. FAMOTIDINE [Concomitant]
     Active Substance: FAMOTIDINE
     Indication: Prophylaxis
     Dosage: 1 MILLIGRAM/KILOGRAM, QD
     Route: 042
  8. GENTAMICIN [Concomitant]
     Active Substance: GENTAMICIN
     Indication: Small intestinal obstruction
     Dosage: 5.00 MILLIGRAM/KILOGRAM, BID
     Route: 050
     Dates: start: 20210603
  9. BACTRIM [Concomitant]
     Active Substance: SULFAMETHOXAZOLE\TRIMETHOPRIM
     Indication: Small intestinal obstruction
     Dosage: 30.50 MILLIGRAM, QD
     Route: 050
     Dates: start: 20210603

REACTIONS (1)
  - Pyrexia [Recovered/Resolved]

NARRATIVE: CASE EVENT DATE: 20220126
